FAERS Safety Report 15113106 (Version 4)
Quarter: 2019Q1

REPORT INFORMATION
  Report Type: Spontaneous
  Country: IT (occurrence: IT)
  Receive Date: 20180706
  Receipt Date: 20190225
  Transmission Date: 20190417
  Serious: Yes (Hospitalization)
  Sender: FDA-Public Use
  Company Number: IT-ABBVIE-18K-083-2410169-00

PATIENT
  Age: 29 Year
  Sex: Female
  Weight: 70 kg

DRUGS (1)
  1. MAVIRET [Suspect]
     Active Substance: GLECAPREVIR\PIBRENTASVIR
     Indication: HEPATITIS C
     Dosage: (100 + 40)*3 UNIT
     Route: 048
     Dates: start: 20180528, end: 20180722

REACTIONS (3)
  - Suicide attempt [Recovered/Resolved]
  - Exposure to toxic agent [Recovered/Resolved]
  - Exposure via ingestion [Recovered/Resolved]

NARRATIVE: CASE EVENT DATE: 20180703
